FAERS Safety Report 10502770 (Version 1)
Quarter: 2014Q4

REPORT INFORMATION
  Report Type: Spontaneous
  Country: CN (occurrence: CN)
  Receive Date: 20141007
  Receipt Date: 20141007
  Transmission Date: 20150528
  Serious: Yes (Other)
  Sender: FDA-Public Use
  Company Number: CN-SYMPLMED PHARMACEUTICALS-2014SYM00109

PATIENT
  Age: 73 Year
  Sex: Female
  Weight: 61 kg

DRUGS (2)
  1. ACEON [Suspect]
     Active Substance: PERINDOPRIL ERBUMINE
     Indication: VENTRICULAR REMODELLING
  2. ACEON [Suspect]
     Active Substance: PERINDOPRIL ERBUMINE
     Indication: HYPERTENSION
     Dosage: 4 MG, QD
     Route: 048
     Dates: start: 20140113, end: 20140116

REACTIONS (3)
  - Dyspnoea [Unknown]
  - Productive cough [None]
  - Cough [Recovering/Resolving]

NARRATIVE: CASE EVENT DATE: 20140115
